FAERS Safety Report 21398957 (Version 2)
Quarter: 2022Q4

REPORT INFORMATION
  Report Type: Spontaneous
  Country: US (occurrence: US)
  Receive Date: 20221001
  Receipt Date: 20221012
  Transmission Date: 20230113
  Serious: No
  Sender: FDA-Public Use
  Company Number: US-drreddys-SPO/USA/22/0155162

PATIENT
  Age: 61 Year

DRUGS (1)
  1. ZENATANE [Suspect]
     Active Substance: ISOTRETINOIN
     Indication: Acne
     Dosage: RMA ISSUE DATE: 01 AUGUST 2022 05:10:02 PM
     Dates: start: 20220708, end: 20220906

REACTIONS (3)
  - Pain [Unknown]
  - Myalgia [Unknown]
  - Arthralgia [Unknown]
